FAERS Safety Report 5486969-5 (Version None)
Quarter: 2007Q4

REPORT INFORMATION
  Report Type: 
  Country: None (occurrence: None)
  Receive Date: 20071012
  Receipt Date: 20071012
  Transmission Date: 20080405
  Serious: Yes (Hospitalization)
  Sender: FDA-Public Use
  Company Number: None

PATIENT
  Age: 85 Year
  Sex: Male

DRUGS (3)
  1. ASPIRIN [Suspect]
     Indication: CORONARY ARTERY DISEASE
     Dosage: 81MG EVERY DAY PO
     Route: 048
     Dates: start: 19970710, end: 20070717
  2. ASPIRIN [Suspect]
     Indication: PROPHYLAXIS
     Dosage: 81MG EVERY DAY PO
     Route: 048
     Dates: start: 19970710, end: 20070717
  3. MELOXICAM [Suspect]
     Indication: BACK PAIN
     Dosage: 15MG EVERY DAY PO
     Route: 048
     Dates: start: 20050810, end: 20070716

REACTIONS (3)
  - ANAEMIA [None]
  - DUODENAL ULCER [None]
  - GASTRIC HAEMORRHAGE [None]
